FAERS Safety Report 21792956 (Version 1)
Quarter: 2022Q4

REPORT INFORMATION
  Report Type: Spontaneous
  Country: ES (occurrence: ES)
  Receive Date: 20221229
  Receipt Date: 20221229
  Transmission Date: 20230112
  Serious: Yes (Hospitalization)
  Sender: FDA-Public Use
  Company Number: ES-ALKEM LABORATORIES LIMITED-ES-ALKEM-2022-11718

PATIENT
  Age: 12 Year
  Sex: Female

DRUGS (3)
  1. SIROLIMUS [Suspect]
     Active Substance: SIROLIMUS
     Indication: Lymphatic disorder
     Dosage: 0.8 MILLIGRAM/SQ. METER, BID (EVERY 12 HOURS)
     Route: 048
  2. SIROLIMUS [Suspect]
     Active Substance: SIROLIMUS
     Indication: Malformation venous
  3. SULFAMETHOXAZOLE\TRIMETHOPRIM [Concomitant]
     Active Substance: SULFAMETHOXAZOLE\TRIMETHOPRIM
     Indication: Antifungal prophylaxis
     Dosage: UNK (2 DAYS A WEEK)
     Route: 065

REACTIONS (2)
  - Lymphopenia [Unknown]
  - Respiratory tract infection [Unknown]
